FAERS Safety Report 20693895 (Version 1)
Quarter: 2022Q2

REPORT INFORMATION
  Report Type: Spontaneous
  Country: CA (occurrence: CA)
  Receive Date: 20220411
  Receipt Date: 20220411
  Transmission Date: 20220720
  Serious: Yes (Hospitalization)
  Sender: FDA-Public Use
  Company Number: CA-BoehringerIngelheim-2022-BI-163985

PATIENT
  Age: 69 Year
  Sex: Female

DRUGS (10)
  1. SPIRIVA [Suspect]
     Active Substance: TIOTROPIUM BROMIDE MONOHYDRATE
     Indication: Product used for unknown indication
  2. PULMICORT TURBUHALER [Suspect]
     Active Substance: BUDESONIDE
     Indication: Product used for unknown indication
     Dosage: 2.0 DOSAGE FORMS
     Route: 055
  3. VENTOLIN [Suspect]
     Active Substance: ALBUTEROL SULFATE
     Indication: Product used for unknown indication
  4. OMALIZUMAB [Suspect]
     Active Substance: OMALIZUMAB
     Indication: Product used for unknown indication
  5. PREDNISONE [Suspect]
     Active Substance: PREDNISONE
     Indication: Asthma
  6. CAYSTON [Suspect]
     Active Substance: AZTREONAM
     Indication: Product used for unknown indication
  7. MEPOLIZUMAB [Suspect]
     Active Substance: MEPOLIZUMAB
     Indication: Asthma
     Route: 058
  8. MEPOLIZUMAB [Suspect]
     Active Substance: MEPOLIZUMAB
     Route: 058
  9. PULMOZYME [Suspect]
     Active Substance: DORNASE ALFA
     Indication: Product used for unknown indication
  10. ADVAIR HFA [Suspect]
     Active Substance: FLUTICASONE PROPIONATE\SALMETEROL XINAFOATE
     Indication: Product used for unknown indication
     Dosage: 1.0 DOSAGE FORM
     Route: 055

REACTIONS (6)
  - Asthma [Unknown]
  - Cystic fibrosis [Unknown]
  - Dyspnoea [Unknown]
  - Loss of personal independence in daily activities [Unknown]
  - Sleep disorder due to a general medical condition [Unknown]
  - Wheezing [Unknown]
